FAERS Safety Report 8813741 (Version 1)
Quarter: 2012Q4

REPORT INFORMATION
  Report Type: Report from Study
  Country: DE (occurrence: DE)
  Receive Date: 20120928
  Receipt Date: 20120928
  Transmission Date: 20130627
  Serious: Yes (Death, Other)
  Sender: FDA-Public Use
  Company Number: DE-ROCHE-1091223

PATIENT
  Sex: Female

DRUGS (2)
  1. TARCEVA [Suspect]
     Indication: LUNG ADENOCARCINOMA
     Route: 048
     Dates: start: 20120302
  2. AVASTIN [Suspect]
     Indication: LUNG ADENOCARCINOMA
     Route: 065
     Dates: start: 20120303, end: 20120521

REACTIONS (4)
  - Pneumonia [Fatal]
  - Lung infiltration [Unknown]
  - Neoplasm malignant [Unknown]
  - General physical health deterioration [Unknown]
